FAERS Safety Report 23421901 (Version 1)
Quarter: 2024Q1

REPORT INFORMATION
  Report Type: Spontaneous
  Country: None (occurrence: BE)
  Receive Date: 20240119
  Receipt Date: 20240119
  Transmission Date: 20240410
  Serious: Yes (Other)
  Sender: FDA-Public Use
  Company Number: BE-Harrow Eye-2151545

PATIENT
  Age: 56 Year
  Sex: Female

DRUGS (8)
  1. MAXIDEX [Suspect]
     Active Substance: DEXAMETHASONE
     Indication: Product used for unknown indication
  2. CYCLOPHOSPHAMIDE [Suspect]
     Active Substance: CYCLOPHOSPHAMIDE
  3. GEMCITABINE [Suspect]
     Active Substance: GEMCITABINE
  4. PREDNISOLONE [Suspect]
     Active Substance: PREDNISOLONE
  5. RITUXIMAB [Suspect]
     Active Substance: RITUXIMAB
  6. DOXORUBICIN [Suspect]
     Active Substance: DOXORUBICIN
  7. CISPLATIN [Suspect]
     Active Substance: CISPLATIN
  8. VINCRISTINE [Suspect]
     Active Substance: VINCRISTINE

REACTIONS (1)
  - Disease progression [Unknown]
